FAERS Safety Report 7132958-4 (Version None)
Quarter: 2010Q4

REPORT INFORMATION
  Report Type: 
  Country: None (occurrence: None)
  Receive Date: 20101202
  Receipt Date: 20101019
  Transmission Date: 20110411
  Serious: Yes (Death, Life-Threatening, Other)
  Sender: FDA-Public Use
  Company Number: US-BAXTER-2008BH010987

PATIENT
  Age: 59 Year
  Sex: Male
  Weight: 98 kg

DRUGS (53)
  1. HEPARIN SODIUM INJECTION [Suspect]
     Indication: HAEMODIALYSIS
     Route: 040
     Dates: start: 20071206, end: 20071208
  2. HEPARIN SODIUM INJECTION [Suspect]
     Indication: INTRAVENOUS CATHETER MANAGEMENT
     Route: 040
     Dates: start: 20071206, end: 20071208
  3. HEPARIN SODIUM INJECTION [Suspect]
     Route: 010
     Dates: start: 20071206, end: 20071208
  4. HEPARIN SODIUM INJECTION [Suspect]
     Route: 010
     Dates: start: 20071206, end: 20071208
  5. HEPARIN SODIUM INJECTION [Suspect]
     Route: 042
     Dates: start: 20071120, end: 20071204
  6. HEPARIN SODIUM INJECTION [Suspect]
     Route: 042
     Dates: start: 20071120, end: 20071204
  7. HEPARIN SODIUM INJECTION [Suspect]
     Route: 042
     Dates: start: 20071120, end: 20071204
  8. HEPARIN SODIUM INJECTION [Suspect]
     Route: 042
     Dates: start: 20071120, end: 20071204
  9. HEPARIN SODIUM INJECTION [Suspect]
     Route: 040
     Dates: start: 20071211, end: 20071213
  10. HEPARIN SODIUM INJECTION [Suspect]
     Route: 040
     Dates: start: 20071211, end: 20071213
  11. HEPARIN SODIUM INJECTION [Suspect]
     Route: 010
     Dates: start: 20071211, end: 20071213
  12. HEPARIN SODIUM INJECTION [Suspect]
     Route: 010
     Dates: start: 20071211, end: 20071213
  13. HEPARIN SODIUM INJECTION [Suspect]
     Route: 010
     Dates: start: 20071120, end: 20071204
  14. HEPARIN SODIUM INJECTION [Suspect]
     Route: 010
     Dates: start: 20071120, end: 20071204
  15. HEPARIN SODIUM INJECTION [Suspect]
     Route: 010
     Dates: start: 20071120, end: 20071204
  16. HEPARIN SODIUM INJECTION [Suspect]
     Route: 010
     Dates: start: 20071120, end: 20071204
  17. HEPARIN SODIUM INJECTION [Suspect]
     Route: 010
     Dates: start: 20071119, end: 20071119
  18. HEPARIN SODIUM INJECTION [Suspect]
     Route: 010
     Dates: start: 20071119, end: 20071119
  19. HEPARIN SODIUM INJECTION [Suspect]
     Route: 010
     Dates: start: 20071119, end: 20071119
  20. HEPARIN SODIUM INJECTION [Suspect]
     Route: 010
     Dates: start: 20071119, end: 20071119
  21. HEPARIN SODIUM INJECTION [Suspect]
     Route: 010
     Dates: start: 20071206, end: 20071213
  22. HEPARIN SODIUM INJECTION [Suspect]
     Route: 010
     Dates: start: 20071206, end: 20071213
  23. HEPARIN SODIUM INJECTION [Suspect]
     Route: 010
     Dates: start: 20071206, end: 20071213
  24. HEPARIN SODIUM INJECTION [Suspect]
     Route: 010
     Dates: start: 20071206, end: 20071213
  25. PREDNISONE [Concomitant]
     Indication: PRODUCT USED FOR UNKNOWN INDICATION
     Route: 065
  26. CYTOXAN [Concomitant]
     Indication: PRODUCT USED FOR UNKNOWN INDICATION
     Route: 065
  27. XANAX [Concomitant]
     Indication: PRODUCT USED FOR UNKNOWN INDICATION
     Route: 065
  28. PHOSLO [Concomitant]
     Indication: PRODUCT USED FOR UNKNOWN INDICATION
     Route: 065
  29. NEPHRO-VITE RX [Concomitant]
     Indication: PRODUCT USED FOR UNKNOWN INDICATION
     Route: 065
  30. PREDNISONE [Concomitant]
     Route: 065
  31. NIFEDICAL [Concomitant]
     Indication: PRODUCT USED FOR UNKNOWN INDICATION
     Route: 065
  32. PANTOPRAZOLE [Concomitant]
     Indication: PRODUCT USED FOR UNKNOWN INDICATION
     Route: 065
  33. CLONIDINE [Concomitant]
     Indication: PRODUCT USED FOR UNKNOWN INDICATION
     Route: 065
  34. PROCARDIA [Concomitant]
     Indication: PRODUCT USED FOR UNKNOWN INDICATION
     Route: 065
  35. ALPRAZOLAM [Concomitant]
     Indication: PRODUCT USED FOR UNKNOWN INDICATION
     Route: 065
  36. PRENAVITE [Concomitant]
     Indication: PRODUCT USED FOR UNKNOWN INDICATION
     Route: 065
  37. EPOGEN [Concomitant]
     Indication: PRODUCT USED FOR UNKNOWN INDICATION
     Route: 065
  38. HYDROCHLOROTHIAZIDE [Concomitant]
     Indication: PRODUCT USED FOR UNKNOWN INDICATION
     Route: 048
  39. CALAN [Concomitant]
     Indication: PRODUCT USED FOR UNKNOWN INDICATION
     Route: 048
  40. ASPIRIN [Concomitant]
     Indication: PRODUCT USED FOR UNKNOWN INDICATION
     Route: 048
  41. MULTI-VITAMINS [Concomitant]
     Indication: PRODUCT USED FOR UNKNOWN INDICATION
     Route: 048
  42. DOCUSATE SODIUM [Concomitant]
     Indication: PRODUCT USED FOR UNKNOWN INDICATION
     Route: 048
  43. DIPHENHYDRAMINE [Concomitant]
     Indication: INSOMNIA
     Route: 048
  44. ATORVASTATIN CALCIUM [Concomitant]
     Indication: PRODUCT USED FOR UNKNOWN INDICATION
     Route: 048
  45. TEMAZEPAM [Concomitant]
     Indication: PRODUCT USED FOR UNKNOWN INDICATION
     Route: 065
  46. ZOLPIDEM TARTRATE [Concomitant]
     Indication: PRODUCT USED FOR UNKNOWN INDICATION
     Route: 065
  47. CALCIUM CARBONATE [Concomitant]
     Indication: PRODUCT USED FOR UNKNOWN INDICATION
     Route: 065
  48. METHYLPREDNISOLONE [Concomitant]
     Indication: PRODUCT USED FOR UNKNOWN INDICATION
     Route: 065
  49. SODIUM CHLORIDE [Concomitant]
     Indication: PRODUCT USED FOR UNKNOWN INDICATION
     Route: 065
  50. SODIUM BICARBONATE [Concomitant]
     Indication: PRODUCT USED FOR UNKNOWN INDICATION
     Route: 065
  51. XANAX [Concomitant]
     Route: 065
  52. RESTORIL [Concomitant]
     Indication: PRODUCT USED FOR UNKNOWN INDICATION
     Route: 065
  53. MYLANTA [Concomitant]
     Indication: PRODUCT USED FOR UNKNOWN INDICATION
     Route: 065

REACTIONS (24)
  - ABDOMINAL PAIN [None]
  - BURNING SENSATION [None]
  - COAGULOPATHY [None]
  - COUGH [None]
  - DECREASED APPETITE [None]
  - DIARRHOEA [None]
  - DYSPEPSIA [None]
  - DYSPNOEA [None]
  - HEART RATE DECREASED [None]
  - INSOMNIA [None]
  - NAUSEA [None]
  - OBSTRUCTIVE AIRWAYS DISORDER [None]
  - PARAESTHESIA [None]
  - PERIPHERAL COLDNESS [None]
  - RASH GENERALISED [None]
  - RENAL FAILURE [None]
  - RESPIRATORY ARREST [None]
  - RESTLESSNESS [None]
  - RHINORRHOEA [None]
  - SKIN DISCOLOURATION [None]
  - SUDDEN CARDIAC DEATH [None]
  - THIRST [None]
  - THROAT IRRITATION [None]
  - WEGENER'S GRANULOMATOSIS [None]
